FAERS Safety Report 10360477 (Version 1)
Quarter: 2014Q3

REPORT INFORMATION
  Report Type: Spontaneous
  Country: IT (occurrence: None)
  Receive Date: 20140730
  Receipt Date: 20140730
  Transmission Date: 20150326
  Serious: Yes (Other)
  Sender: FDA-Public Use
  Company Number: IPC201407-000374

PATIENT
  Age: 66 Year
  Sex: Male

DRUGS (1)
  1. ALLOPURINOL (ALLOPURINOL) (ALLOPURINOL) [Suspect]
     Active Substance: ALLOPURINOL
     Indication: HYPERURICAEMIA

REACTIONS (9)
  - Pyrexia [None]
  - Rash [None]
  - Hepatosplenomegaly [None]
  - Drug reaction with eosinophilia and systemic symptoms [None]
  - Asthenia [None]
  - Oesophagitis [None]
  - Diarrhoea [None]
  - Dysphagia [None]
  - Pruritus [None]
